FAERS Safety Report 17077132 (Version 3)
Quarter: 2020Q2

REPORT INFORMATION
  Report Type: Report from Study
  Country: US (occurrence: US)
  Receive Date: 20191126
  Receipt Date: 20200407
  Transmission Date: 20200713
  Serious: Yes (Hospitalization)
  Sender: FDA-Public Use
  Company Number: US-EISAI MEDICAL RESEARCH-EC-2019-065865

PATIENT
  Age: 15 Year
  Sex: Male
  Weight: 84.5 kg

DRUGS (20)
  1. EVEROLIMUS. [Suspect]
     Active Substance: EVEROLIMUS
     Route: 048
     Dates: start: 20191109, end: 20191114
  2. OMEPRAZOLE. [Concomitant]
     Active Substance: OMEPRAZOLE
  3. ONDANSETRON [Concomitant]
     Active Substance: ONDANSETRON
  4. MORPHINE [Concomitant]
     Active Substance: MORPHINE
  5. BACTROBAN [Concomitant]
     Active Substance: MUPIROCIN\MUPIROCIN CALCIUM
  6. LENVATINIB [Suspect]
     Active Substance: LENVATINIB
     Route: 048
     Dates: start: 20191108, end: 20191110
  7. EVEROLIMUS. [Suspect]
     Active Substance: EVEROLIMUS
     Indication: GLIOMA
     Route: 048
     Dates: start: 20190823, end: 20190919
  8. DORZOLAMIDE-TIMOLOL [Concomitant]
     Active Substance: DORZOLAMIDE\TIMOLOL
  9. NORMAL SALINE [Concomitant]
     Active Substance: SODIUM CHLORIDE
  10. DEXAMETHASONE. [Concomitant]
     Active Substance: DEXAMETHASONE
  11. LOPERAMIDE [Concomitant]
     Active Substance: LOPERAMIDE
  12. MELATONIN [Concomitant]
     Active Substance: MELATONIN
  13. LEVOTHYROXINE. [Concomitant]
     Active Substance: LEVOTHYROXINE
  14. KEFLEX [Concomitant]
     Active Substance: CEPHALEXIN
  15. EVEROLIMUS. [Suspect]
     Active Substance: EVEROLIMUS
     Route: 048
     Dates: start: 20190927, end: 20191101
  16. ATENOLOL. [Concomitant]
     Active Substance: ATENOLOL
  17. CELECOXIB. [Concomitant]
     Active Substance: CELECOXIB
  18. FISH OIL [Concomitant]
     Active Substance: FISH OIL
  19. LENVATINIB [Suspect]
     Active Substance: LENVATINIB
     Indication: GLIOMA
     Route: 048
     Dates: start: 20190823, end: 20191031
  20. BRIMONIDINE OPTHALMIC SOLUTION [Concomitant]

REACTIONS (1)
  - Deep vein thrombosis [Not Recovered/Not Resolved]

NARRATIVE: CASE EVENT DATE: 20191122
